FAERS Safety Report 5426774-9 (Version None)
Quarter: 2007Q3

REPORT INFORMATION
  Report Type: 
  Country: None (occurrence: None)
  Receive Date: 20070827
  Receipt Date: 20070815
  Transmission Date: 20080115
  Serious: Yes (Death, Other)
  Sender: FDA-Public Use
  Company Number: US-PFIZER INC-2007068258

PATIENT
  Sex: Female

DRUGS (1)
  1. PROCARDIA [Suspect]
     Indication: PROPHYLAXIS
     Route: 064
     Dates: start: 20070726, end: 20070803

REACTIONS (4)
  - BLOOD POTASSIUM DECREASED [None]
  - DRUG EXPOSURE DURING PREGNANCY [None]
  - FOETAL DISTRESS SYNDROME [None]
  - RENAL IMPAIRMENT [None]
